FAERS Safety Report 25131717 (Version 1)
Quarter: 2025Q1

REPORT INFORMATION
  Report Type: Report from Study
  Country: CA (occurrence: CA)
  Receive Date: 20250327
  Receipt Date: 20250327
  Transmission Date: 20250409
  Serious: Yes (Hospitalization)
  Sender: CSL BEHRING
  Company Number: CA-Vifor (International) Inc.-VIT-2024-01414

PATIENT
  Sex: Male

DRUGS (3)
  1. VELTASSA [Suspect]
     Active Substance: PATIROMER
     Indication: Hyperkalaemia
     Route: 048
  2. VELTASSA [Suspect]
     Active Substance: PATIROMER
     Dosage: 8.4,G,TIW
     Route: 048
     Dates: start: 20230328
  3. VELPHORO [Suspect]
     Active Substance: SUCROFERRIC OXYHYDROXIDE
     Indication: Blood phosphorus increased
     Dosage: 500,MG,TID
     Route: 048
     Dates: start: 20230328

REACTIONS (3)
  - Hospitalisation [Unknown]
  - Off label use [Unknown]
  - Therapy interrupted [Unknown]
